FAERS Safety Report 4878924-0 (Version None)
Quarter: 2005Q4

REPORT INFORMATION
  Report Type: 
  Country: None (occurrence: None)
  Receive Date: 20051209
  Receipt Date: 20050505
  Transmission Date: 20060501
  Serious: Yes (Death, Other)
  Sender: FDA-Public Use
  Company Number: USA-2005-0020151

PATIENT
  Age: 41 Year
  Sex: Female

DRUGS (5)
  1. OXYCONTIN [Suspect]
     Indication: PAIN
     Dosage: 120 MG, BID, ORAL
     Route: 048
  2. FLEXERIL [Concomitant]
  3. MOTRIM [Concomitant]
  4. PERCOCET [Concomitant]
  5. AMBIEN [Concomitant]

REACTIONS (2)
  - DRUG ABUSER [None]
  - INTENTIONAL OVERDOSE [None]
